FAERS Safety Report 6260290-X (Version None)
Quarter: 2009Q3

REPORT INFORMATION
  Report Type: 
  Country: None (occurrence: None)
  Receive Date: 20090708
  Receipt Date: 20090626
  Transmission Date: 20100115
  Serious: Yes (Hospitalization)
  Sender: FDA-Public Use
  Company Number: SE-ELI_LILLY_AND_COMPANY-SE200906006271

PATIENT
  Age: 68 Year
  Sex: Female

DRUGS (9)
  1. ALIMTA [Suspect]
     Indication: NON-SMALL CELL LUNG CANCER
     Dosage: 750 MG, EVERY THREE WEEKS
     Route: 065
     Dates: start: 20090415, end: 20090401
  2. ALIMTA [Suspect]
     Dosage: 700 MG, EVERY THREE WEEKS
     Route: 065
     Dates: start: 20090508, end: 20090508
  3. OXYNORM [Concomitant]
     Dosage: UNK, UNKNOWN
     Route: 065
  4. OXYCONTIN [Concomitant]
     Dosage: UNK, UNKNOWN
     Route: 065
  5. PRIMPERAN /00041901/ [Concomitant]
     Dosage: UNK, UNKNOWN
     Route: 065
  6. POSTAFEN [Concomitant]
     Dosage: UNK, UNKNOWN
     Route: 065
  7. ALVEDON [Concomitant]
     Dosage: UNK, UNKNOWN
     Route: 065
  8. KALEORID [Concomitant]
     Dosage: UNK, UNKNOWN
     Route: 065
  9. TRIOBE [Concomitant]
     Dosage: UNK, UNKNOWN
     Route: 065

REACTIONS (2)
  - HYPONATRAEMIA [None]
  - WEIGHT DECREASED [None]
